FAERS Safety Report 5192346-7 (Version None)
Quarter: 2006Q4

REPORT INFORMATION
  Report Type: 
  Country: None (occurrence: None)
  Receive Date: 20061227
  Receipt Date: 20061113
  Transmission Date: 20070319
  Serious: Yes (Other)
  Sender: FDA-Public Use
  Company Number: GB-PFIZER INC-2006141371

PATIENT
  Age: 69 Year
  Sex: Male

DRUGS (9)
  1. DETRUSITOL [Suspect]
     Indication: URINARY RETENTION
     Route: 048
     Dates: start: 20060925, end: 20061001
  2. DETRUSITOL [Suspect]
     Indication: URINARY TRACT DISORDER
  3. PROMAZINE HYDROCHLORIDE [Concomitant]
     Route: 048
  4. OMEPRAZOLE [Concomitant]
     Route: 048
  5. FUROSEMIDE [Concomitant]
  6. CEPHALEXIN [Concomitant]
     Dates: start: 20060918, end: 20060101
  7. CEFOTAXIME [Concomitant]
     Dates: start: 20060918, end: 20060101
  8. ACETAMINOPHEN [Concomitant]
  9. ONDANSETRON HCL [Concomitant]
     Dates: start: 20060918, end: 20060101

REACTIONS (2)
  - ECZEMA [None]
  - RASH GENERALISED [None]
